FAERS Safety Report 6517962-9 (Version None)
Quarter: 2009Q4

REPORT INFORMATION
  Report Type: 
  Country: None (occurrence: None)
  Receive Date: 20091224
  Receipt Date: 20091207
  Transmission Date: 20100525
  Serious: Yes (Hospitalization)
  Sender: FDA-Public Use
  Company Number: GB-JNJFOC-20070901809

PATIENT
  Age: 76 Year
  Sex: Female

DRUGS (5)
  1. TRAMADOL HCL [Suspect]
     Indication: BACK PAIN
     Route: 048
  2. FUROSEMIDE [Concomitant]
     Route: 065
  3. SIMVASTIN [Concomitant]
     Route: 065
  4. LEVOTHYROXINE SODIUM [Concomitant]
     Route: 065
  5. STATINS [Concomitant]

REACTIONS (2)
  - BILE DUCT STENOSIS [None]
  - CHOLANGITIS [None]
